FAERS Safety Report 10068721 (Version 1)
Quarter: 2014Q2

REPORT INFORMATION
  Report Type: Spontaneous
  Country: US (occurrence: US)
  Receive Date: 20140409
  Receipt Date: 20140409
  Transmission Date: 20141212
  Serious: No
  Sender: FDA-Public Use
  Company Number: US-BAUSCH-BL-2013-005961

PATIENT
  Age: 65 Year
  Sex: Female

DRUGS (1)
  1. FLUNISOLIDE NASAL SOLUTION USP 0.025% [Suspect]
     Indication: SEASONAL ALLERGY
     Dosage: ONE SPRAY INTO EACH NOSTRIL AS NEEDED
     Route: 045
     Dates: start: 201303

REACTIONS (1)
  - Epistaxis [Recovered/Resolved]
